FAERS Safety Report 13084818 (Version 2)
Quarter: 2017Q1

REPORT INFORMATION
  Report Type: Report from Study
  Country: US (occurrence: US)
  Receive Date: 20170104
  Receipt Date: 20170111
  Transmission Date: 20170428
  Serious: Yes (Hospitalization)
  Sender: FDA-Public Use
  Company Number: US-GILEAD-2017-0251621

PATIENT
  Age: 62 Year
  Sex: Female

DRUGS (1)
  1. AMBRISENTAN [Suspect]
     Active Substance: AMBRISENTAN
     Indication: PRODUCT USED FOR UNKNOWN INDICATION
     Dosage: 10 MG, QD
     Route: 065
     Dates: start: 20150506

REACTIONS (4)
  - Dyspnoea at rest [Unknown]
  - Dyspnoea exertional [Unknown]
  - Palpitations [Unknown]
  - Supraventricular tachycardia [Unknown]
